FAERS Safety Report 4978526-1 (Version None)
Quarter: 2006Q1

REPORT INFORMATION
  Report Type: 
  Country: None (occurrence: None)
  Receive Date: 20060227
  Receipt Date: 20050207
  Transmission Date: 20060701
  Serious: Yes (Life-Threatening, Hospitalization)
  Sender: FDA-Public Use
  Company Number: WAES 0502USA00730

PATIENT
  Age: 44 Year
  Sex: Female
  Weight: 122.4712 kg

DRUGS (6)
  1. ZOCOR [Suspect]
     Indication: BLOOD CHOLESTEROL INCREASED
     Dosage: 40 MG/DAILY/PO
     Route: 048
     Dates: start: 20011001, end: 20050201
  2. ZOCOR [Suspect]
     Indication: HYPERTENSION
     Dosage: 40 MG/DAILY/PO
     Route: 048
     Dates: start: 20011001, end: 20050201
  3. HYZAAR [Suspect]
     Dosage: 100-25 MG, PO
     Dates: start: 20020927, end: 20050201
  4. AVANDIA [Concomitant]
  5. COZAAR [Concomitant]
  6. GLUCOVANCE [Concomitant]

REACTIONS (1)
  - RHABDOMYOLYSIS [None]
